FAERS Safety Report 5888214-5 (Version None)
Quarter: 2008Q3

REPORT INFORMATION
  Report Type: 
  Country: None (occurrence: None)
  Receive Date: 20080916
  Receipt Date: 20080916
  Transmission Date: 20090109
  Serious: Yes (Other)
  Sender: FDA-Public Use
  Company Number: None

PATIENT
  Sex: Female
  Weight: 56.6996 kg

DRUGS (1)
  1. LISINOPRIL [Suspect]
     Dosage: 1 DAILY PO
     Route: 048

REACTIONS (3)
  - NIGHTMARE [None]
  - PANIC REACTION [None]
  - SCREAMING [None]
